FAERS Safety Report 6430189-4 (Version None)
Quarter: 2009Q4

REPORT INFORMATION
  Report Type: 
  Country: None (occurrence: None)
  Receive Date: 20091106
  Receipt Date: 20090529
  Transmission Date: 20100525
  Serious: No
  Sender: FDA-Public Use
  Company Number: US-ABBOTT-09P-163-0577356-00

PATIENT
  Sex: Male
  Weight: 80.358 kg

DRUGS (7)
  1. KALETRA [Suspect]
     Indication: HIV INFECTION
     Route: 065
     Dates: start: 20010101, end: 20060101
  2. KALETRA [Suspect]
     Route: 065
     Dates: start: 20070101
  3. VIRAMUNE [Concomitant]
     Indication: HIV INFECTION
     Route: 048
     Dates: start: 20010101
  4. EPIVIR [Concomitant]
     Indication: HIV INFECTION
     Dosage: UNKNOWN
     Route: 065
     Dates: start: 20010101
  5. HYDROXRRHEA [Concomitant]
     Indication: HIV INFECTION
     Dosage: UNKNOWN
     Route: 065
     Dates: start: 20010101
  6. CLONIDINE [Concomitant]
     Indication: HYPERTENSION
     Route: 048
  7. VIREAD [Concomitant]
     Indication: HIV INFECTION
     Dosage: UNKNOWN
     Route: 065
     Dates: start: 20010101

REACTIONS (8)
  - ABDOMINAL PAIN [None]
  - ASTHENIA [None]
  - DIARRHOEA [None]
  - FATIGUE [None]
  - HEADACHE [None]
  - NAUSEA [None]
  - NIGHTMARE [None]
  - VISION BLURRED [None]
